FAERS Safety Report 10750257 (Version 1)
Quarter: 2015Q1

REPORT INFORMATION
  Report Type: Spontaneous
  Country: US (occurrence: US)
  Receive Date: 20150129
  Receipt Date: 20150129
  Transmission Date: 20150721
  Serious: Yes (Other)
  Sender: FDA-Public Use
  Company Number: CHPA2015US001158

PATIENT
  Sex: Female

DRUGS (1)
  1. GAS-X [Suspect]
     Active Substance: DIMETHICONE
     Indication: ABDOMINAL DISTENSION
     Dosage: UNK
     Route: 048

REACTIONS (1)
  - Diverticulitis [Unknown]

NARRATIVE: CASE EVENT DATE: 201501
